FAERS Safety Report 4844346-1 (Version None)
Quarter: 2005Q4

REPORT INFORMATION
  Report Type: 
  Country: None (occurrence: None)
  Receive Date: 20051202
  Receipt Date: 20051006
  Transmission Date: 20060501
  Serious: Yes (Hospitalization)
  Sender: FDA-Public Use
  Company Number: US-MERCK-0510USA04878

PATIENT
  Age: 68 Year
  Sex: Female
  Weight: 65 kg

DRUGS (1)
  1. VIOXX [Suspect]
     Indication: OSTEOARTHRITIS
     Route: 048
     Dates: start: 19990101, end: 20010101

REACTIONS (2)
  - CORONARY ARTERY OCCLUSION [None]
  - HYPERTENSION [None]
